FAERS Safety Report 8339473-0 (Version None)
Quarter: 2012Q2

REPORT INFORMATION
  Report Type: 
  Country: None (occurrence: None)
  Receive Date: 20120507
  Receipt Date: 20120425
  Transmission Date: 20120825
  Serious: Yes (Hospitalization)
  Sender: FDA-Public Use
  Company Number: PHHY2012FR036528

PATIENT
  Sex: Male

DRUGS (2)
  1. VALSARTAN  AND HYDROCHLOROTHIAZIDE [Suspect]
     Dosage: 1 DF, BID
     Route: 048
     Dates: end: 20110309
  2. NOOTROPYL [Suspect]
     Dosage: 400 MG, QD
     Route: 048
     Dates: end: 20110309

REACTIONS (10)
  - DYSKINESIA [None]
  - HYPOTENSION [None]
  - CONDITION AGGRAVATED [None]
  - CEREBRAL ATROPHY [None]
  - EYE MOVEMENT DISORDER [None]
  - DIZZINESS [None]
  - MALAISE [None]
  - CEREBRAL VENTRICLE DILATATION [None]
  - CEREBELLAR SYNDROME [None]
  - SYNCOPE [None]
